FAERS Safety Report 6212464-1 (Version None)
Quarter: 2009Q2

REPORT INFORMATION
  Report Type: 
  Country: None (occurrence: None)
  Receive Date: 20090603
  Receipt Date: 20070403
  Transmission Date: 20091009
  Serious: Yes (Other)
  Sender: FDA-Public Use
  Company Number: US-ASTRAZENECA-2006UW09111

PATIENT
  Age: 51 Year
  Sex: Female
  Weight: 133.4 kg

DRUGS (15)
  1. SEROQUEL [Suspect]
     Indication: BIPOLAR DISORDER
     Dosage: 25-200 MG
     Route: 048
     Dates: start: 20000601
  2. SEROQUEL [Suspect]
     Indication: DEPRESSION
     Dosage: 25-200 MG
     Route: 048
     Dates: start: 20000601
  3. SEROQUEL [Suspect]
     Indication: SLEEP DISORDER
     Dosage: 25-200 MG
     Route: 048
     Dates: start: 20000601
  4. SEROQUEL [Suspect]
     Route: 048
     Dates: start: 20000612, end: 20050510
  5. SEROQUEL [Suspect]
     Route: 048
     Dates: start: 20000612, end: 20050510
  6. SEROQUEL [Suspect]
     Route: 048
     Dates: start: 20000612, end: 20050510
  7. TEMAZEPAM [Concomitant]
     Route: 048
     Dates: start: 20030916
  8. REGLAN [Concomitant]
     Route: 048
     Dates: start: 20000707
  9. PREMARIN [Concomitant]
     Route: 048
     Dates: start: 20000707
  10. ADALAT [Concomitant]
     Route: 048
     Dates: start: 20000707
  11. PEPCID [Concomitant]
     Dates: start: 20000330
  12. ULTRAM [Concomitant]
     Dates: start: 20000419
  13. SKELAXIN [Concomitant]
     Dates: start: 20000523
  14. CLARITIN [Concomitant]
     Dates: start: 20010706
  15. EFFEXOR [Concomitant]
     Dosage: 75-150 MG
     Route: 048
     Dates: start: 20000707

REACTIONS (7)
  - CHILLS [None]
  - DIABETES MELLITUS [None]
  - DIZZINESS [None]
  - HEPATITIS C [None]
  - LIVER DISORDER [None]
  - PYREXIA [None]
  - TYPE 2 DIABETES MELLITUS [None]
